FAERS Safety Report 15651347 (Version 2)
Quarter: 2019Q1

REPORT INFORMATION
  Report Type: Spontaneous
  Country: US (occurrence: US)
  Receive Date: 20181123
  Receipt Date: 20190112
  Transmission Date: 20190417
  Serious: Yes (Hospitalization, Other)
  Sender: FDA-Public Use
  Company Number: US-TEVA-2018-US-978881

PATIENT
  Age: 61 Year
  Sex: Female

DRUGS (7)
  1. BENZATROPINE [Concomitant]
     Active Substance: BENZTROPINE
  2. PRAVASTATIN. [Concomitant]
     Active Substance: PRAVASTATIN
  3. PROPRANOLOL [Concomitant]
     Active Substance: PROPRANOLOL HYDROCHLORIDE
  4. MELOXICAM. [Concomitant]
     Active Substance: MELOXICAM
  5. LEVOTHYROXINE. [Concomitant]
     Active Substance: LEVOTHYROXINE
  6. RISPERDAL [Concomitant]
     Active Substance: RISPERIDONE
  7. LITHIUM. [Suspect]
     Active Substance: LITHIUM
     Route: 065

REACTIONS (2)
  - Tremor [Recovering/Resolving]
  - Urinary incontinence [Unknown]

NARRATIVE: CASE EVENT DATE: 20171016
